FAERS Safety Report 7764208-X (Version None)
Quarter: 2011Q3

REPORT INFORMATION
  Report Type: 
  Country: None (occurrence: None)
  Receive Date: 20110921
  Receipt Date: 20110916
  Transmission Date: 20111222
  Serious: Yes (Life-Threatening)
  Sender: FDA-Public Use
  Company Number: PHHY2011GB82592

PATIENT
  Age: 7 Day
  Sex: Female
  Weight: 1.42 kg

DRUGS (9)
  1. CEFOTAXIME [Concomitant]
  2. NITRIC OXIDE [Concomitant]
  3. VECURONIUM BROMIDE [Concomitant]
  4. FLUCONAZOLE [Suspect]
     Route: 042
     Dates: start: 20110903, end: 20110903
  5. PENICILLIN [Concomitant]
  6. CEFTAZIDIME [Concomitant]
  7. BLOOD TRANSFUSION [Concomitant]
  8. MORPHINE [Concomitant]
  9. VANCOMYCIN [Concomitant]

REACTIONS (4)
  - HYPOTENSION [None]
  - POOR PERIPHERAL CIRCULATION [None]
  - PALLOR [None]
  - LIVEDO RETICULARIS [None]
